FAERS Safety Report 12256560 (Version 1)
Quarter: 2016Q2

REPORT INFORMATION
  Report Type: Spontaneous
  Country: US (occurrence: US)
  Receive Date: 20160412
  Receipt Date: 20160412
  Transmission Date: 20160815
  Serious: No
  Sender: FDA-Public Use
  Company Number: US-WARNER CHILCOTT, LLC-1050458

PATIENT
  Age: 47 Year
  Sex: Female
  Weight: 70.46 kg

DRUGS (7)
  1. TESTOSTERONE. [Concomitant]
     Active Substance: TESTOSTERONE
  2. MONTELUKAST [Concomitant]
     Active Substance: MONTELUKAST SODIUM
  3. MULTIVIT [Concomitant]
     Active Substance: VITAMINS
  4. VITAMIN D3DIETARY SUPPLEMEN DIETARY SUPPLEMENT [Concomitant]
     Active Substance: ALPHA-TOCOPHEROL\CHOLECALCIFEROL
  5. FEMRING [Suspect]
     Active Substance: ESTRADIOL ACETATE
     Indication: HORMONE REPLACEMENT THERAPY
     Route: 067
     Dates: start: 20160205, end: 20160213
  6. CALCIUM CITRATE [Concomitant]
     Active Substance: CALCIUM CITRATE
  7. DHEA [Concomitant]
     Active Substance: PRASTERONE

REACTIONS (10)
  - Drug ineffective [Recovered/Resolved]
  - Pelvic pain [Recovered/Resolved]
  - Malaise [Recovered/Resolved]
  - Vulvovaginal burning sensation [Recovered/Resolved]
  - Vulvovaginal swelling [Recovered/Resolved]
  - Complication associated with device [Recovered/Resolved]
  - Medical device discomfort [Recovered/Resolved]
  - Back pain [Recovered/Resolved]
  - Vaginal discharge [Recovered/Resolved]
  - Vulvovaginal discomfort [Recovered/Resolved]

NARRATIVE: CASE EVENT DATE: 20160205
